FAERS Safety Report 5924328-9 (Version None)
Quarter: 2008Q3

REPORT INFORMATION
  Report Type: 
  Country: None (occurrence: None)
  Receive Date: 20080909
  Receipt Date: 20080213
  Transmission Date: 20090109
  Serious: Yes (Hospitalization)
  Sender: FDA-Public Use
  Company Number: 163-20785-08020736

PATIENT
  Age: 65 Year
  Sex: Female
  Weight: 87 kg

DRUGS (27)
  1. THALOMID [Suspect]
     Indication: MULTIPLE MYELOMA
     Dosage: 200 MG, ORAL ; 50 MG, ALTERNATING DAYS, ORAL
     Route: 048
     Dates: start: 20050604
  2. THALOMID [Suspect]
     Indication: MULTIPLE MYELOMA
     Dosage: 200 MG, ORAL ; 50 MG, ALTERNATING DAYS, ORAL
     Route: 048
     Dates: start: 20080205
  3. DEXAMETHASONE TAB [Suspect]
     Indication: MULTIPLE MYELOMA
     Dosage: 40 MG ; 20 MG, TIMES FOUR Q 28 DAYS
     Dates: start: 20050604
  4. DEXAMETHASONE TAB [Suspect]
     Indication: MULTIPLE MYELOMA
     Dosage: 40 MG ; 20 MG, TIMES FOUR Q 28 DAYS
     Dates: start: 20080124
  5. VELCADE [Suspect]
     Indication: MULTIPLE MYELOMA
     Dosage: 1 MG/M2 ; 1 MG/M2
     Dates: start: 20050601
  6. VELCADE [Suspect]
     Indication: MULTIPLE MYELOMA
     Dosage: 1 MG/M2 ; 1 MG/M2
     Dates: start: 20070809
  7. CISPLATIN [Suspect]
     Indication: MULTIPLE MYELOMA
     Dosage: 10 FEG ; 7.5 MG/M2
     Dates: start: 20050604
  8. CISPLATIN [Suspect]
     Indication: MULTIPLE MYELOMA
     Dosage: 10 FEG ; 7.5 MG/M2
     Dates: start: 20060312
  9. ADRIAMYCIN PFS [Suspect]
     Indication: MULTIPLE MYELOMA
     Dosage: 7.5 MG/M2
     Dates: start: 20050604
  10. ADRIAMYCIN PFS [Suspect]
     Indication: MULTIPLE MYELOMA
     Dosage: 7.5 MG/M2
     Dates: start: 20060312
  11. CYCLOPHOSPHAMIDE [Suspect]
     Indication: MULTIPLE MYELOMA
     Dosage: 400 MG/M2 ; 300 MG/M2
     Dates: start: 20050604
  12. CYCLOPHOSPHAMIDE [Suspect]
     Indication: MULTIPLE MYELOMA
     Dosage: 400 MG/M2 ; 300 MG/M2
     Dates: start: 20060312
  13. ETOPOSIDE [Suspect]
     Indication: MULTIPLE MYELOMA
     Dosage: 40 MG/M2 ; 30 MG/M2
     Dates: start: 20050604
  14. ETOPOSIDE [Suspect]
     Indication: MULTIPLE MYELOMA
     Dosage: 40 MG/M2 ; 30 MG/M2
     Dates: start: 20060312
  15. MELPHALAN (MELPHALAN) [Suspect]
     Indication: MULTIPLE MYELOMA
     Dosage: 200 MG/M2 ; 200 MG/M2
     Dates: start: 20050806
  16. MELPHALAN (MELPHALAN) [Suspect]
     Indication: MULTIPLE MYELOMA
     Dosage: 200 MG/M2 ; 200 MG/M2
     Dates: start: 20051007
  17. ACYCLOVIR [Suspect]
  18. LORAZEPAM (LORAZEPAM) (TABLETS) [Concomitant]
  19. PREMARIN [Concomitant]
  20. PROVERA [Concomitant]
  21. CELEXA [Concomitant]
  22. PROVIGIL [Concomitant]
  23. XANAX [Concomitant]
  24. AMBIEN [Concomitant]
  25. LIPITOR [Concomitant]
  26. LEVAQUIN [Concomitant]
  27. VICODIN [Concomitant]

REACTIONS (1)
  - INFLUENZA [None]
